FAERS Safety Report 8866399 (Version 2)
Quarter: 2012Q4

REPORT INFORMATION
  Report Type: 
  Country: JP (occurrence: JP)
  Receive Date: 20121025
  Receipt Date: 20121109
  Transmission Date: 20130627
  Serious: Yes (Death, Hospitalization, Other)
  Sender: FDA-Public Use
  Company Number: JP-ELI_LILLY_AND_COMPANY-JP201209008416

PATIENT
  Age: 70 Year
  Sex: Female
  Weight: 70 kg

DRUGS (7)
  1. GEMZAR [Suspect]
     Indication: ADENOCARCINOMA PANCREAS
     Dosage: 1000 mg/m2, UNK
     Route: 042
     Dates: start: 20110926, end: 20111220
  2. TARCEVA [Concomitant]
     Indication: ADENOCARCINOMA PANCREAS
     Dosage: 100 mg, UNK
     Dates: start: 20110926, end: 20111205
  3. LOCOID [Concomitant]
     Indication: PROPHYLAXIS
     Dosage: UNK
     Dates: start: 20110926, end: 20111205
  4. PARIET [Concomitant]
     Indication: PROPHYLAXIS
     Dosage: 10 mg, UNK
     Route: 048
     Dates: start: 20110928, end: 20111205
  5. LOXONIN [Concomitant]
     Dosage: 120 mg, UNK
     Route: 048
     Dates: start: 20111108, end: 20111205
  6. MUCOSTA [Concomitant]
     Dosage: 200 mg, UNK
     Route: 048
     Dates: start: 20111004, end: 20111205
  7. LORCAM [Concomitant]
     Dosage: 8 mg, UNK
     Route: 048
     Dates: start: 20111004, end: 20111205

REACTIONS (5)
  - Neoplasm progression [Fatal]
  - Blood glucose increased [Unknown]
  - Interstitial lung disease [Recovered/Resolved]
  - Dysgeusia [Not Recovered/Not Resolved]
  - Rash [Recovered/Resolved]
